FAERS Safety Report 8595761 (Version 2)
Quarter: 2014Q1

REPORT INFORMATION
  Report Type: Spontaneous
  Country: US (occurrence: US)
  Receive Date: 20120605
  Receipt Date: 20140113
  Transmission Date: 20141002
  Serious: Yes (Disabling)
  Sender: FDA-Public Use
  Company Number: US-ASTRAZENECA-2012SE34756

PATIENT
  Age: 55 Year
  Sex: Female
  Weight: 83.9 kg

DRUGS (23)
  1. NEXIUM [Suspect]
     Indication: GASTROOESOPHAGEAL REFLUX DISEASE
     Dosage: ONCE DAILY ONE HOUR BEFORE MEALS
     Route: 048
     Dates: start: 1986, end: 2008
  2. NEXIUM [Suspect]
     Indication: GASTROOESOPHAGEAL REFLUX DISEASE
     Dosage: ONCE DAILY ONE HOUR BEFORE MEALS
     Route: 048
     Dates: start: 2008, end: 2012
  3. NEXIUM [Suspect]
     Indication: GASTROOESOPHAGEAL REFLUX DISEASE
     Route: 048
     Dates: start: 20080107
  4. PRILOSEC [Suspect]
     Route: 048
  5. PREVACID [Concomitant]
  6. ZANTAC [Concomitant]
  7. TAGAMET [Concomitant]
  8. PEPCID [Concomitant]
  9. TUMS [Concomitant]
  10. ALKA-SELTZER [Concomitant]
  11. MILK OF MAGNESIA [Concomitant]
  12. PEPTO-BISMOL [Concomitant]
  13. ROLAIDS [Concomitant]
  14. MYLANTA [Concomitant]
  15. PREMARIN [Concomitant]
  16. ESTROGENS [Concomitant]
  17. METOCLOPRAMIDE [Concomitant]
  18. VITAMIN D [Concomitant]
  19. LANSOPRAZOLE [Concomitant]
  20. ALENDRONATE [Concomitant]
  21. FERREX [Concomitant]
     Dates: start: 20121025
  22. FAMOTIDINE [Concomitant]
     Dates: start: 20121023
  23. MELOXICAM [Concomitant]
     Dates: start: 20130417

REACTIONS (14)
  - Intervertebral disc protrusion [Unknown]
  - Joint dislocation [Unknown]
  - Osteoporosis [Unknown]
  - Wrist fracture [Unknown]
  - Multiple fractures [Unknown]
  - Angina pectoris [Unknown]
  - Arthritis [Unknown]
  - Glaucoma [Unknown]
  - Hepatitis C [Unknown]
  - Peripheral arterial occlusive disease [Unknown]
  - Vitamin D deficiency [Unknown]
  - Ankle fracture [Unknown]
  - Carpal tunnel syndrome [Unknown]
  - Osteopenia [Unknown]
